FAERS Safety Report 4926446-0 (Version None)
Quarter: 2006Q1

REPORT INFORMATION
  Report Type: 
  Country: None (occurrence: None)
  Receive Date: 20060228
  Receipt Date: 20051128
  Transmission Date: 20060701
  Serious: No
  Sender: FDA-Public Use
  Company Number: US-GLAXOSMITHKLINE-A0583702A

PATIENT
  Sex: Female

DRUGS (3)
  1. LAMICTAL [Suspect]
     Indication: BIPOLAR DISORDER
     Dosage: 25MG SINGLE DOSE
     Route: 048
  2. LITHIUM [Concomitant]
  3. GABITRIL [Concomitant]

REACTIONS (1)
  - RASH GENERALISED [None]
